FAERS Safety Report 4840967-0 (Version None)
Quarter: 2005Q4

REPORT INFORMATION
  Report Type: 
  Country: None (occurrence: None)
  Receive Date: 20051130
  Receipt Date: 20050809
  Transmission Date: 20060501
  Serious: No
  Sender: FDA-Public Use
  Company Number: US-BRISTOL-MYERS SQUIBB COMPANY-13069372

PATIENT
  Age: 56 Year
  Sex: Female
  Weight: 100 kg

DRUGS (1)
  1. ABILIFY [Suspect]
     Dosage: DOSAGE INCREASED TO 10 MG DAILY
     Route: 048

REACTIONS (1)
  - RASH [None]
